FAERS Safety Report 9738763 (Version 1)
Quarter: 2013Q4

REPORT INFORMATION
  Report Type: Spontaneous
  Country: HU (occurrence: HU)
  Receive Date: 20131209
  Receipt Date: 20131209
  Transmission Date: 20140711
  Serious: Yes (Other)
  Sender: FDA-Public Use
  Company Number: HU-009507513-1312HUN002179

PATIENT
  Age: 59 Year
  Sex: Female

DRUGS (3)
  1. VICTRELIS [Suspect]
     Indication: HEPATITIS C
     Dosage: 2400MG/DAY
     Route: 048
     Dates: start: 20130923, end: 20131122
  2. REBETOL [Suspect]
     Indication: HEPATITIS C
     Dosage: UNK, QW
     Route: 048
     Dates: start: 20130823, end: 20131122
  3. PEGINTRON [Suspect]
     Indication: HEPATITIS C
     Dosage: UNK, QW
     Route: 058
     Dates: start: 20130823, end: 20131121

REACTIONS (2)
  - Dermatitis allergic [Recovering/Resolving]
  - Cellulitis [Unknown]
